FAERS Safety Report 21195173 (Version 6)
Quarter: 2024Q2

REPORT INFORMATION
  Report Type: Spontaneous
  Country: US (occurrence: US)
  Receive Date: 20220810
  Receipt Date: 20240506
  Transmission Date: 20240716
  Serious: No
  Sender: FDA-Public Use
  Company Number: US-PFIZER INC-202200647343

PATIENT
  Age: 69 Year
  Sex: Male
  Weight: 90.72 kg

DRUGS (1)
  1. GENOTROPIN [Suspect]
     Active Substance: SOMATROPIN
     Dosage: 1.2 MG, DAILY
     Dates: end: 20240130

REACTIONS (3)
  - Device use error [Unknown]
  - Device issue [Unknown]
  - Device breakage [Unknown]
